FAERS Safety Report 8702095 (Version 2)
Quarter: 2013Q4

REPORT INFORMATION
  Report Type: Spontaneous
  Country: US (occurrence: US)
  Receive Date: 20120803
  Receipt Date: 20131101
  Transmission Date: 20140711
  Serious: No
  Sender: FDA-Public Use
  Company Number: US-009507513-83040111

PATIENT
  Sex: Female

DRUGS (1)
  1. ELAVIL [Suspect]
     Route: 048

REACTIONS (3)
  - Dizziness [Unknown]
  - Asthenia [Unknown]
  - Somnolence [Unknown]
